FAERS Safety Report 4764745-6 (Version None)
Quarter: 2005Q3

REPORT INFORMATION
  Report Type: 
  Country: None (occurrence: None)
  Receive Date: 20050909
  Receipt Date: 20050729
  Transmission Date: 20060218
  Serious: Yes (Hospitalization, Disabling)
  Sender: FDA-Public Use
  Company Number: US-MERCK-0508USA00457

PATIENT
  Age: 58 Year
  Sex: Female
  Weight: 86 kg

DRUGS (7)
  1. VIOXX [Suspect]
     Indication: ARTHRALGIA
     Route: 048
     Dates: start: 20000324, end: 20040930
  2. VIOXX [Suspect]
     Indication: PAIN
     Route: 048
     Dates: start: 20000324, end: 20040930
  3. NEURONTIN [Concomitant]
     Route: 065
  4. XANAX [Concomitant]
     Route: 065
  5. VERELAN [Concomitant]
     Route: 065
  6. BENICAR HCT [Concomitant]
     Route: 065
  7. DYNACIRC [Concomitant]
     Route: 065

REACTIONS (3)
  - ANXIETY [None]
  - CEREBROVASCULAR ACCIDENT [None]
  - DEPRESSION [None]
